FAERS Safety Report 24978027 (Version 1)
Quarter: 2025Q1

REPORT INFORMATION
  Report Type: Spontaneous
  Country: US (occurrence: US)
  Receive Date: 20250217
  Receipt Date: 20250217
  Transmission Date: 20250409
  Serious: No
  Sender: PERRIGO
  Company Number: US-PERRIGO-24US006781

PATIENT
  Sex: Female

DRUGS (1)
  1. NICOTINE POLACRILEX [Suspect]
     Active Substance: NICOTINE
     Indication: Product used for unknown indication
     Route: 002
     Dates: start: 20240422

REACTIONS (2)
  - Gingival pain [Unknown]
  - Oral discomfort [Unknown]

NARRATIVE: CASE EVENT DATE: 20240715
